FAERS Safety Report 6531055-6 (Version None)
Quarter: 2010Q1

REPORT INFORMATION
  Report Type: 
  Country: None (occurrence: None)
  Receive Date: 20100108
  Receipt Date: 20091026
  Transmission Date: 20100710
  Serious: No
  Sender: FDA-Public Use
  Company Number: A0813659A

PATIENT
  Age: 43 Year
  Sex: Female

DRUGS (7)
  1. LOVAZA [Suspect]
     Dosage: 1G FOUR TIMES PER DAY
     Route: 048
     Dates: start: 20091020, end: 20091023
  2. FUROSEMIDE [Concomitant]
  3. POTASSIUM CHLORIDE [Concomitant]
  4. LIPITOR [Concomitant]
  5. METFORMIN HYDROCHLORIDE [Concomitant]
  6. BENICAR HCT [Concomitant]
  7. GLIPIZIDE [Concomitant]

REACTIONS (1)
  - WRONG TECHNIQUE IN DRUG USAGE PROCESS [None]
